FAERS Safety Report 5572937-1 (Version None)
Quarter: 2007Q4

REPORT INFORMATION
  Report Type: 
  Country: None (occurrence: None)
  Receive Date: 20071219
  Receipt Date: 20071219
  Transmission Date: 20080405
  Serious: No
  Sender: FDA-Public Use
  Company Number: None

PATIENT
  Age: 22 Year
  Sex: Male
  Weight: 72.5755 kg

DRUGS (6)
  1. LOXAPINE [Suspect]
     Dosage: 10MG PO
     Route: 048
  2. ARIPIPRAZOLE [Concomitant]
  3. ALPRAZOLAM EXTENDED-RELEASE [Concomitant]
  4. TOPIRAMATE [Concomitant]
  5. TRAZODONE HCL [Concomitant]
  6. LORATADINE [Concomitant]

REACTIONS (2)
  - RASH [None]
  - VOMITING [None]
